FAERS Safety Report 7771749-8 (Version None)
Quarter: 2011Q3

REPORT INFORMATION
  Report Type: 
  Country: None (occurrence: None)
  Receive Date: 20110922
  Receipt Date: 20110915
  Transmission Date: 20111222
  Serious: Yes (Death, Other)
  Sender: FDA-Public Use
  Company Number: FR-CELGENEUS-056-21880-11091919

PATIENT
  Sex: Female

DRUGS (4)
  1. CYTARABINE [Suspect]
     Dosage: 330 MILLIGRAM
     Route: 041
     Dates: start: 20100714, end: 20100720
  2. CERUBIDINE [Suspect]
     Dosage: 100 MILLIGRAM
     Route: 041
     Dates: start: 20100714, end: 20100716
  3. REVLIMID [Suspect]
     Dosage: 10 MILLIGRAM
     Route: 048
     Dates: start: 20100714, end: 20100803
  4. NILEVAR [Suspect]
     Route: 065

REACTIONS (1)
  - RECTAL CANCER [None]
